FAERS Safety Report 6047282-0 (Version None)
Quarter: 2009Q1

REPORT INFORMATION
  Report Type: 
  Country: None (occurrence: None)
  Receive Date: 20090122
  Receipt Date: 20090112
  Transmission Date: 20090719
  Serious: Yes (Other)
  Sender: FDA-Public Use
  Company Number: GB-ELI_LILLY_AND_COMPANY-GB200901002038

PATIENT
  Age: 54 Year
  Sex: Female

DRUGS (11)
  1. CYMBALTA [Suspect]
     Indication: DEPRESSION
     Dates: start: 20080601
  2. PERINDOPRIL [Concomitant]
  3. CLIMAVAL [Concomitant]
     Indication: HORMONE REPLACEMENT THERAPY
  4. ASPIRIN [Concomitant]
  5. SIMVASTATIN [Concomitant]
  6. TOLTERODINE [Concomitant]
  7. ACETAMINOPHEN W/ CODEINE [Concomitant]
  8. GAVISCON                                /GFR/ [Concomitant]
  9. FLUTICASONE PROPIONATE [Concomitant]
     Route: 055
  10. ALBUTEROL [Concomitant]
     Route: 055
  11. ALBUTEROL SULFATE [Concomitant]
     Route: 055

REACTIONS (2)
  - DYSPHAGIA [None]
  - OESOPHAGEAL CARCINOMA [None]
